FAERS Safety Report 7026537-7 (Version None)
Quarter: 2010Q3

REPORT INFORMATION
  Report Type: 
  Country: None (occurrence: None)
  Receive Date: 20100929
  Receipt Date: 20100921
  Transmission Date: 20110219
  Serious: Yes (Hospitalization)
  Sender: FDA-Public Use
  Company Number: WAES 1005USA00383

PATIENT
  Age: 28 Year
  Sex: Female

DRUGS (3)
  1. ISENTRESS [Suspect]
     Indication: HIV INFECTION
     Dosage: 400 MG/BID, PO
     Route: 048
     Dates: start: 20090617
  2. PLACEBO (UNSPECIFIED) [Suspect]
     Indication: HIV INFECTION
     Dosage: 2 TAB/DAILY, PO
     Route: 048
     Dates: start: 20090617
  3. TRUVADA [Suspect]
     Indication: HIV INFECTION
     Dosage: 1 TAB/DAILY, PO
     Route: 048
     Dates: start: 20090617

REACTIONS (2)
  - HODGKIN'S DISEASE [None]
  - LYMPHADENITIS [None]
